FAERS Safety Report 8896370 (Version 1)
Quarter: 2012Q4

REPORT INFORMATION
  Report Type: Spontaneous
  Country: US (occurrence: None)
  Receive Date: 20121107
  Receipt Date: 20121107
  Transmission Date: 20130627
  Serious: Yes (Hospitalization)
  Sender: FDA-Public Use
  Company Number: None

PATIENT
  Sex: Female
  Weight: 79.5 kg

DRUGS (1)
  1. ALENDRONATE [Suspect]
     Indication: OSTEOPOROSIS PROPHYLAXIS
     Dosage: 70 MG ONCE A WEEK MOUTH
     Route: 048
     Dates: start: 20120924

REACTIONS (6)
  - Condition aggravated [None]
  - Arthralgia [None]
  - Movement disorder [None]
  - Pain [None]
  - Fatigue [None]
  - Dyspnoea [None]
